FAERS Safety Report 13709450 (Version 2)
Quarter: 2017Q3

REPORT INFORMATION
  Report Type: Spontaneous
  Country: US (occurrence: US)
  Receive Date: 20170703
  Receipt Date: 20170711
  Transmission Date: 20171127
  Serious: Yes (Other)
  Sender: FDA-Public Use
  Company Number: US-BAYER-2017-122028

PATIENT
  Sex: Female

DRUGS (2)
  1. BETASERON [Suspect]
     Active Substance: INTERFERON BETA-1B
     Dosage: RECONSTITUTE WITH 1.2 ML DILUENT AND INJECT 1 ML(0.25 MG)
     Route: 058
  2. RABIES VACCINE [Suspect]
     Active Substance: RABIES VACCINE
     Dosage: 2ND SERIES

REACTIONS (3)
  - Mental impairment [Recovered/Resolved]
  - Peripheral swelling [Recovered/Resolved]
  - Eye swelling [Recovered/Resolved]
